FAERS Safety Report 18203692 (Version 2)
Quarter: 2020Q3

REPORT INFORMATION
  Report Type: Report from Study
  Country: BR (occurrence: BR)
  Receive Date: 20200827
  Receipt Date: 20200914
  Transmission Date: 20201103
  Serious: Yes (Other)
  Sender: FDA-Public Use
  Company Number: NVSC2020BR233770

PATIENT
  Sex: Male
  Weight: 79.5 kg

DRUGS (5)
  1. ENTRESTO [Suspect]
     Active Substance: SACUBITRIL\VALSARTAN
     Dosage: UNK (DOSE INCREASED AFTER IMPROVEMENT)
     Route: 065
  2. VALSARTAN. [Suspect]
     Active Substance: VALSARTAN
     Indication: PRODUCT USED FOR UNKNOWN INDICATION
     Dosage: UNK
     Route: 065
  3. ATORVASTATIN [Suspect]
     Active Substance: ATORVASTATIN
     Indication: PRODUCT USED FOR UNKNOWN INDICATION
     Dosage: 40 MG, QD (ONE AT NIGHT)
     Route: 065
  4. ENTRESTO [Suspect]
     Active Substance: SACUBITRIL\VALSARTAN
     Indication: CARDIAC FAILURE
     Dosage: 2 DF, BID (2 TABLETS IN MORNING, 2 TABLETS IN NIGHT)
     Route: 065
     Dates: start: 20191227, end: 20200820
  5. CARVEDILOL. [Concomitant]
     Active Substance: CARVEDILOL
     Indication: PRODUCT USED FOR UNKNOWN INDICATION
     Dosage: 25 MG, BID
     Route: 065

REACTIONS (16)
  - Psychiatric symptom [Unknown]
  - Discomfort [Recovering/Resolving]
  - Myocardial infarction [Unknown]
  - Fatigue [Unknown]
  - Malaise [Recovering/Resolving]
  - Overweight [Not Recovered/Not Resolved]
  - Dyspnoea [Recovering/Resolving]
  - Back pain [Unknown]
  - Incorrect dose administered [Unknown]
  - Apathy [Unknown]
  - Product dispensing error [Unknown]
  - Asphyxia [Recovering/Resolving]
  - Feeling abnormal [Recovering/Resolving]
  - Chest pain [Unknown]
  - Dizziness [Unknown]
  - Agitation [Recovering/Resolving]
